FAERS Safety Report 5286231-X (Version None)
Quarter: 2007Q1

REPORT INFORMATION
  Report Type: 
  Country: None (occurrence: None)
  Receive Date: 20070116
  Receipt Date: 20061204
  Transmission Date: 20070707
  Serious: No
  Sender: FDA-Public Use
  Company Number: 2006SP004256

PATIENT
  Age: 80 Year
  Sex: Male
  Weight: 86.1834 kg

DRUGS (6)
  1. LUNESTA [Suspect]
     Indication: INSOMNIA
     Dosage: 3 MG;ORAL
     Route: 048
     Dates: start: 20061129
  2. AMBIEN [Concomitant]
  3. BUMEX [Concomitant]
  4. WATER PILLS [Concomitant]
  5. POTASSIUM ACETATE [Concomitant]
  6. LANOXIN [Concomitant]

REACTIONS (2)
  - DRUG INEFFECTIVE [None]
  - MIDDLE INSOMNIA [None]
